FAERS Safety Report 13961240 (Version 5)
Quarter: 2017Q4

REPORT INFORMATION
  Report Type: Report from Study
  Country: US (occurrence: US)
  Receive Date: 20170912
  Receipt Date: 20171125
  Transmission Date: 20180320
  Serious: Yes (Hospitalization, Other)
  Sender: FDA-Public Use
  Company Number: US-AMGEN-USASL2017136244

PATIENT
  Age: 68 Year
  Sex: Female
  Weight: 68.27 kg

DRUGS (3)
  1. ELIQUIS [Concomitant]
     Active Substance: APIXABAN
  2. REPATHA [Suspect]
     Active Substance: EVOLOCUMAB
     Indication: HYPERCHOLESTEROLAEMIA
     Dosage: 140 MG, Q2WK
     Route: 065
     Dates: start: 20160721
  3. REPATHA [Suspect]
     Active Substance: EVOLOCUMAB
     Indication: DYSLIPIDAEMIA

REACTIONS (17)
  - Hypotension [Unknown]
  - Muscular weakness [Unknown]
  - Gastroenteritis [Not Recovered/Not Resolved]
  - Spinal fracture [Unknown]
  - Malaise [Unknown]
  - Memory impairment [Unknown]
  - Internal haemorrhage [Recovered/Resolved]
  - Pelvic floor muscle weakness [Unknown]
  - Wrong technique in product usage process [Unknown]
  - Haemoglobin decreased [Recovered/Resolved]
  - Back pain [Unknown]
  - Burning sensation [Unknown]
  - Gastritis [Recovered/Resolved]
  - Constipation [Recovering/Resolving]
  - Abdominal pain upper [Unknown]
  - Dyspnoea [Unknown]
  - Chest pain [Recovered/Resolved]

NARRATIVE: CASE EVENT DATE: 201607
